FAERS Safety Report 23852186 (Version 1)
Quarter: 2024Q2

REPORT INFORMATION
  Report Type: Spontaneous
  Country: US (occurrence: None)
  Receive Date: 20240513
  Receipt Date: 20240513
  Transmission Date: 20240716
  Serious: No
  Sender: FDA-Public Use
  Company Number: None

PATIENT
  Age: 71 Year
  Sex: Female

DRUGS (2)
  1. COSENTYX [Suspect]
     Active Substance: SECUKINUMAB
     Indication: Psoriasis
     Dosage: FREQUENCY : WEEKLY;?
     Route: 058
     Dates: start: 202403
  2. COSENTYX [Suspect]
     Active Substance: SECUKINUMAB
     Indication: Drug therapy

REACTIONS (3)
  - Throat irritation [None]
  - Cough [None]
  - Respiratory disorder [None]
